FAERS Safety Report 8112221-5 (Version None)
Quarter: 2012Q1

REPORT INFORMATION
  Report Type: 
  Country: None (occurrence: None)
  Receive Date: 20120131
  Receipt Date: 20120123
  Transmission Date: 20120608
  Serious: Yes (Death)
  Sender: FDA-Public Use
  Company Number: ADR-2012-00185

PATIENT
  Sex: Male

DRUGS (4)
  1. BUPIVACAINE 25 MG/ML [Concomitant]
  2. BACLOFEN [Suspect]
     Indication: SURGICAL FAILURE
     Dosage: 27.32 MCG/DAY
     Route: 037
  3. BACLOFEN [Suspect]
     Indication: PAIN
     Dosage: 27.32 MCG/DAY
     Route: 037
  4. MORPHINE 30 MG/ML INTRATHECAL [Concomitant]

REACTIONS (1)
  - NEOPLASM MALIGNANT [None]
